FAERS Safety Report 18737462 (Version 1)
Quarter: 2021Q1

REPORT INFORMATION
  Report Type: Spontaneous
  Country: BR (occurrence: BR)
  Receive Date: 20210113
  Receipt Date: 20210113
  Transmission Date: 20210419
  Serious: Yes (Other)
  Sender: FDA-Public Use
  Company Number: BR-ALLERGAN-2101550US

PATIENT
  Sex: Male

DRUGS (5)
  1. LUMIGAN [Suspect]
     Active Substance: BIMATOPROST
     Indication: INTRAOCULAR PRESSURE INCREASED
     Dosage: 1 GTT, QHS
     Route: 047
     Dates: start: 20210105
  2. SIMBRINZA (BRINZOLAMIDE AND BRIMONIDINE TARTRATE) [Concomitant]
     Indication: INTRAOCULAR PRESSURE INCREASED
     Route: 047
  3. METFORMIN [Concomitant]
     Active Substance: METFORMIN HYDROCHLORIDE
     Indication: TYPE 2 DIABETES MELLITUS
     Dosage: 850 MG, UNK
  4. VASOPRIL [Concomitant]
     Indication: HYPERTENSION
     Dosage: 10 MG, UNK
  5. LUMIGAN [Suspect]
     Active Substance: BIMATOPROST
     Dosage: 1 GTT, QHS
     Route: 047
     Dates: start: 2020

REACTIONS (5)
  - Ocular hyperaemia [Not Recovered/Not Resolved]
  - Lacrimation increased [Not Recovered/Not Resolved]
  - Cataract [Unknown]
  - Therapy interrupted [Unknown]
  - Eye pain [Not Recovered/Not Resolved]

NARRATIVE: CASE EVENT DATE: 20210105
